FAERS Safety Report 19963005 (Version 1)
Quarter: 2021Q4

REPORT INFORMATION
  Report Type: Spontaneous
  Country: US (occurrence: US)
  Receive Date: 20211013
  Receipt Date: 20211013
  Transmission Date: 20220303
  Serious: No
  Sender: FDA-Public Use
  Company Number: None

PATIENT
  Sex: Female

DRUGS (1)
  1. NEXPLANON [Suspect]
     Active Substance: ETONOGESTREL
     Indication: Contraception
     Dosage: 68MG ONCEEVERY 3 YEARS SUBDERMALLY
     Dates: start: 201904

REACTIONS (3)
  - Hypoaesthesia [None]
  - Paraesthesia [None]
  - Device dislocation [None]
